FAERS Safety Report 22366105 (Version 1)
Quarter: 2023Q2

REPORT INFORMATION
  Report Type: Spontaneous
  Country: JP (occurrence: JP)
  Receive Date: 20230525
  Receipt Date: 20230525
  Transmission Date: 20230722
  Serious: Yes (Other)
  Sender: FDA-Public Use
  Company Number: JP-CHEPLA-2022007587

PATIENT
  Sex: Female

DRUGS (16)
  1. VALGANCICLOVIR HYDROCHLORIDE [Suspect]
     Active Substance: VALGANCICLOVIR HYDROCHLORIDE
     Route: 048
  2. VALGANCICLOVIR HYDROCHLORIDE [Suspect]
     Active Substance: VALGANCICLOVIR HYDROCHLORIDE
     Dosage: ONCE IN 2 DAY
     Route: 048
  3. GANCICLOVIR [Suspect]
     Active Substance: GANCICLOVIR
     Dosage: IV DRIP
     Route: 042
  4. ETIZOLAM [Suspect]
     Active Substance: ETIZOLAM
     Route: 048
  5. ETHYL LOFLAZEPATE [Concomitant]
     Active Substance: ETHYL LOFLAZEPATE
     Route: 048
  6. XYLOCAINE [Concomitant]
     Active Substance: LIDOCAINE HYDROCHLORIDE
  7. XYLOCAINE [Concomitant]
     Active Substance: LIDOCAINE HYDROCHLORIDE
  8. ATROPINE SULFATE [Concomitant]
     Active Substance: ATROPINE SULFATE
  9. PENTAZOCINE HYDROCHLORIDE [Concomitant]
     Active Substance: PENTAZOCINE HYDROCHLORIDE
  10. FLUMAZENIL [Concomitant]
     Active Substance: FLUMAZENIL
  11. Dormicum [Concomitant]
  12. PENICILLIN [Concomitant]
     Active Substance: PENICILLIN
  13. MICAFUNGIN SODIUM [Concomitant]
     Active Substance: MICAFUNGIN SODIUM
  14. PREDONINE [Concomitant]
     Active Substance: PREDNISOLONE
  15. GANCICLOVIR [Concomitant]
     Active Substance: GANCICLOVIR
  16. ACYCLOVIR [Concomitant]
     Active Substance: ACYCLOVIR

REACTIONS (9)
  - Cataract [Unknown]
  - Renal impairment [Unknown]
  - Nephrotic syndrome [Unknown]
  - Dizziness [Unknown]
  - Hyperhidrosis [Unknown]
  - Vision blurred [Unknown]
  - Oedema [Unknown]
  - Visual impairment [Unknown]
  - Product administration error [Unknown]
